FAERS Safety Report 10597228 (Version 1)
Quarter: 2014Q4

REPORT INFORMATION
  Report Type: Spontaneous
  Country: GB (occurrence: GB)
  Receive Date: 20141121
  Receipt Date: 20141121
  Transmission Date: 20150529
  Serious: Yes (Other)
  Sender: FDA-Public Use
  Company Number: GB-AUROBINDO-AUR-APL-2014-12079

PATIENT
  Sex: Female

DRUGS (1)
  1. CLARITHROMYCIN FILM-COATED TABLET [Suspect]
     Active Substance: CLARITHROMYCIN
     Dosage: UNK
     Route: 065
     Dates: start: 201404

REACTIONS (6)
  - Hallucination [Unknown]
  - Feeling abnormal [Unknown]
  - Headache [Unknown]
  - Arthralgia [Unknown]
  - Rheumatoid arthritis [Unknown]
  - Hot flush [Unknown]

NARRATIVE: CASE EVENT DATE: 201404
